FAERS Safety Report 18459444 (Version 6)
Quarter: 2021Q4

REPORT INFORMATION
  Report Type: Report from Study
  Country: FR (occurrence: FR)
  Receive Date: 20201103
  Receipt Date: 20211216
  Transmission Date: 20220303
  Serious: Yes (Hospitalization, Other)
  Sender: FDA-Public Use
  Company Number: FR-TAKEDA-2020TUS044907

PATIENT
  Age: 16 Year
  Sex: Male

DRUGS (12)
  1. TEDUGLUTIDE [Suspect]
     Active Substance: TEDUGLUTIDE
     Indication: Short-bowel syndrome
     Dosage: 3 MILLIGRAM, 7 DOSES PER
     Route: 065
     Dates: start: 20180719
  2. TEDUGLUTIDE [Suspect]
     Active Substance: TEDUGLUTIDE
     Indication: Short-bowel syndrome
     Dosage: 3 MILLIGRAM, 7 DOSES PER
     Route: 065
     Dates: start: 20180719
  3. TEDUGLUTIDE [Suspect]
     Active Substance: TEDUGLUTIDE
     Indication: Short-bowel syndrome
     Dosage: 3 MILLIGRAM, 7 DOSES PER
     Route: 065
     Dates: start: 20180719
  4. TEDUGLUTIDE [Suspect]
     Active Substance: TEDUGLUTIDE
     Indication: Short-bowel syndrome
     Dosage: 3 MILLIGRAM, 7 DOSES PER
     Route: 065
     Dates: start: 20180719
  5. FAMOTIDINE [Concomitant]
     Active Substance: FAMOTIDINE
     Dosage: 20 MILLIGRAM, QD
     Route: 048
     Dates: start: 20200101
  6. FAMOTIDINE [Concomitant]
     Active Substance: FAMOTIDINE
     Dosage: 20 MILLIGRAM, QD
     Route: 048
     Dates: start: 20200101, end: 20200707
  7. FAMOTIDINE [Concomitant]
     Active Substance: FAMOTIDINE
     Dosage: 20 MILLIGRAM, QD
     Route: 048
     Dates: start: 202012
  8. CLAFORAN [Concomitant]
     Active Substance: CEFOTAXIME SODIUM
     Indication: Escherichia infection
     Dosage: 1 UNKNOWN UNIT
     Route: 042
     Dates: start: 20190610, end: 20190618
  9. VANCOMYCIN [Concomitant]
     Active Substance: VANCOMYCIN
     Indication: Escherichia infection
     Dosage: 60 MILLIGRAM/KILOGRAM
     Route: 042
     Dates: start: 20190610, end: 20190618
  10. SODIUM CHLORIDE [Concomitant]
     Active Substance: SODIUM CHLORIDE
     Indication: Supplementation therapy
     Dosage: 2 SPRAY
     Route: 048
     Dates: start: 20150922
  11. SODIUM CHLORIDE [Concomitant]
     Active Substance: SODIUM CHLORIDE
     Dosage: 12 GRAM
     Route: 065
     Dates: start: 20190911
  12. Fucidine [Concomitant]
     Dosage: 1 DOSAGE FORM, BID
     Route: 065
     Dates: start: 202002, end: 202004

REACTIONS (3)
  - Gastrointestinal stoma output increased [Recovered/Resolved]
  - Diarrhoea [Recovered/Resolved]
  - Abdominal pain [Recovered/Resolved]

NARRATIVE: CASE EVENT DATE: 20190701
